FAERS Safety Report 17253373 (Version 1)
Quarter: 2020Q1

REPORT INFORMATION
  Report Type: Spontaneous
  Country: US (occurrence: US)
  Receive Date: 20200109
  Receipt Date: 20200109
  Transmission Date: 20200409
  Serious: Yes (Hospitalization)
  Sender: FDA-Public Use
  Company Number: US-ELI_LILLY_AND_COMPANY-US202001002629

PATIENT

DRUGS (3)
  1. HUMALOG MIX75/25 [Suspect]
     Active Substance: INSULIN LISPRO
     Indication: DIABETES MELLITUS
     Dosage: 22 U, DAILY
     Route: 058
  2. GLIPIZIDE. [Concomitant]
     Active Substance: GLIPIZIDE
     Indication: DIABETES MELLITUS
  3. BASAGLAR [Suspect]
     Active Substance: INSULIN GLARGINE
     Indication: DIABETES MELLITUS
     Dosage: 14 U, DAILY AT BEDTIME
     Route: 058

REACTIONS (3)
  - Product dose omission [Not Recovered/Not Resolved]
  - Foot fracture [Not Recovered/Not Resolved]
  - Blood glucose increased [Not Recovered/Not Resolved]

NARRATIVE: CASE EVENT DATE: 20200102
